FAERS Safety Report 9241345 (Version 1)
Quarter: 2013Q1

REPORT INFORMATION
  Report Type: Spontaneous
  Country: US (occurrence: None)
  Receive Date: 20121113
  Receipt Date: 20121113
  Transmission Date: 20140127
  Serious: Yes (Other)
  Sender: FDA-Public Use
  Company Number: PHEH2011US06872

PATIENT
  Age: 27 Year
  Sex: Female

DRUGS (4)
  1. TRILEPTAL [Suspect]
  2. LACOSAMIDE [Suspect]
     Indication: CONVULSION
     Route: 042
  3. LEVETIRACETAM (LEVETIRACETAM) [Concomitant]
  4. VALPROATE SEMISODIUM (VALPROATE SEMISODIUM) [Concomitant]

REACTIONS (1)
  - Tachycardia [None]
